FAERS Safety Report 6566619-7 (Version None)
Quarter: 2010Q1

REPORT INFORMATION
  Report Type: 
  Country: None (occurrence: None)
  Receive Date: 20100202
  Receipt Date: 20100122
  Transmission Date: 20100710
  Serious: Yes (Other)
  Sender: FDA-Public Use
  Company Number: US-SANOFI-AVENTIS-2010SA004921

PATIENT
  Age: 78 Year
  Sex: Female

DRUGS (12)
  1. MULTAQ [Suspect]
     Indication: ATRIAL FIBRILLATION
     Route: 048
     Dates: start: 20090901
  2. MULTAQ [Suspect]
     Indication: ATRIAL FLUTTER
     Route: 048
     Dates: start: 20090901
  3. GLIPIZIDE [Concomitant]
  4. KLOR-CON [Concomitant]
  5. WARFARIN SODIUM [Concomitant]
  6. AVAPRO [Concomitant]
  7. ATENOLOL [Concomitant]
  8. FUROSEMIDE [Concomitant]
  9. COQ10 [Concomitant]
  10. VITAMINS [Concomitant]
  11. MAGNESIUM [Concomitant]
  12. HOMEOPATIC PREPARATION [Concomitant]
     Route: 065

REACTIONS (1)
  - ATRIAL FIBRILLATION [None]
